FAERS Safety Report 8977719 (Version 2)
Quarter: 2013Q2

REPORT INFORMATION
  Report Type: Spontaneous
  Country: GB (occurrence: GB)
  Receive Date: 20121220
  Receipt Date: 20130626
  Transmission Date: 20140414
  Serious: Yes (Hospitalization, Other)
  Sender: FDA-Public Use
  Company Number: GB-PFIZER INC-2012267728

PATIENT
  Age: 48 Year
  Sex: Male

DRUGS (7)
  1. AMLODIPINE BESILATE [Suspect]
     Indication: HYPERTENSION
     Dosage: 10 MG, 1X/DAY
     Route: 048
     Dates: start: 200901
  2. TEGRETOL RETARD [Interacting]
     Indication: EPILEPSY
     Dosage: 400 MG, BID
     Route: 048
     Dates: start: 200606
  3. LANSOPRAZOLE [Concomitant]
     Indication: DYSPEPSIA
     Dosage: 30 MG, DAILY
     Route: 048
     Dates: start: 20030203
  4. ACETYLSALICYLIC ACID [Concomitant]
     Indication: CEREBROVASCULAR ACCIDENT
     Dosage: 75 MG, DAILY
     Route: 048
     Dates: start: 200901
  5. ATORVASTATIN [Concomitant]
     Indication: CEREBROVASCULAR ACCIDENT
     Dosage: 40 MG, DAILY
     Route: 048
     Dates: start: 200901
  6. KEPPRA [Concomitant]
     Indication: EPILEPSY
     Dosage: 2 G, 2X/DAY
     Route: 048
     Dates: start: 20040908
  7. SIMVASTATIN [Concomitant]

REACTIONS (6)
  - Drug interaction [Unknown]
  - Hypertension [Not Recovered/Not Resolved]
  - Cerebrovascular accident [Recovering/Resolving]
  - Basal ganglia infarction [Unknown]
  - Hemiparesis [Unknown]
  - Fatigue [Unknown]
